FAERS Safety Report 8442375 (Version 3)
Quarter: 2014Q1

REPORT INFORMATION
  Report Type: Spontaneous
  Country: US (occurrence: US)
  Receive Date: 20120306
  Receipt Date: 20140313
  Transmission Date: 20141002
  Serious: Yes (Hospitalization, Other)
  Sender: FDA-Public Use
  Company Number: US-BAYER-2012-019359

PATIENT
  Age: 34 Year
  Sex: Female
  Weight: 88.44 kg

DRUGS (4)
  1. YAZ [Suspect]
     Indication: PRODUCT USED FOR UNKNOWN INDICATION
     Dosage: UNK
     Dates: start: 2000, end: 2007
  2. ZOLPIDEM [Concomitant]
     Dosage: 10 MG, UNK
     Dates: start: 20090129, end: 20090511
  3. TUMS [CALCIUM CARBONATE] [Concomitant]
     Dosage: 1 DAILY
     Route: 048
     Dates: end: 20090823
  4. PROZAC [Concomitant]
     Dosage: 40 MG DAILY
     Route: 048
     Dates: start: 20090129, end: 20100120

REACTIONS (6)
  - Cholecystectomy [None]
  - Cholecystitis chronic [None]
  - Anxiety [None]
  - Emotional distress [None]
  - General physical health deterioration [None]
  - Pain [None]
